FAERS Safety Report 19609658 (Version 2)
Quarter: 2021Q3

REPORT INFORMATION
  Report Type: Report from Study
  Country: US (occurrence: US)
  Receive Date: 20210726
  Receipt Date: 20210729
  Transmission Date: 20211014
  Serious: Yes (Other)
  Sender: FDA-Public Use
  Company Number: US-PFIZER INC-202100933792

PATIENT
  Weight: 1.06 kg

DRUGS (3)
  1. MORPHINE SULFATE. [Suspect]
     Active Substance: MORPHINE SULFATE
     Indication: AGITATION
     Dosage: 0.1 MG/KG
     Route: 042
  2. CHLORAL HYDRATE [Suspect]
     Active Substance: CHLORAL HYDRATE
  3. MORPHINE SULFATE. [Suspect]
     Active Substance: MORPHINE SULFATE
     Indication: ANALGESIC THERAPY

REACTIONS (1)
  - Infantile apnoea [Unknown]
